FAERS Safety Report 9807409 (Version 1)
Quarter: 2014Q1

REPORT INFORMATION
  Report Type: Spontaneous
  Country: US (occurrence: US)
  Receive Date: 20140110
  Receipt Date: 20140110
  Transmission Date: 20141002
  Serious: Yes (Hospitalization)
  Sender: FDA-Public Use
  Company Number: US-BEH-2014040001

PATIENT
  Age: 76 Year
  Sex: Female
  Weight: 55 kg

DRUGS (25)
  1. ZEMAIRA [Suspect]
     Indication: ALPHA-1 ANTI-TRYPSIN DEFICIENCY
     Dosage: 942 MG/VIAL
     Route: 042
  2. DIPHENHYDRAMINE [Concomitant]
  3. HEPARIN [Concomitant]
  4. LIDOCAINE PRILOCAINE [Concomitant]
  5. SODIUM CHLORIDE [Concomitant]
  6. EPIPEN [Concomitant]
  7. GABAPENTIN [Concomitant]
  8. PLAQUENIL [Concomitant]
  9. METHOTREXATE [Concomitant]
  10. CIPRO [Concomitant]
  11. FOLIC ACID [Concomitant]
  12. ASPIRIN [Concomitant]
  13. IPRATROPIUM [Concomitant]
  14. ALBUTEROL [Concomitant]
  15. SPIRIVA [Concomitant]
  16. MULTIVITAMINS MINERALS [Concomitant]
  17. CALCIUM VITAMIN D [Concomitant]
  18. TRAMADOL [Concomitant]
  19. FOSAMAX [Concomitant]
  20. PREDNISONE [Concomitant]
  21. GUAIFENESIN CODEINE [Concomitant]
  22. SINGULAIR [Concomitant]
  23. CELEBREX [Concomitant]
  24. ADVAIR [Concomitant]
  25. FISH OIL [Concomitant]

REACTIONS (2)
  - Pneumonia [Unknown]
  - Dyspnoea [Unknown]
